FAERS Safety Report 16140101 (Version 1)
Quarter: 2019Q1

REPORT INFORMATION
  Report Type: Report from Study
  Country: US (occurrence: US)
  Receive Date: 20190331
  Receipt Date: 20190331
  Transmission Date: 20190418
  Serious: Yes (Life-Threatening, Hospitalization)
  Sender: FDA-Public Use
  Company Number: PHEH2019US013983

PATIENT
  Age: 66 Year
  Sex: Female

DRUGS (1)
  1. PROMACTA [Suspect]
     Active Substance: ELTROMBOPAG OLAMINE
     Indication: PLATELET COUNT DECREASED
     Dosage: 50 MG, QID
     Route: 048

REACTIONS (2)
  - Intentional overdose [Unknown]
  - Tracheal haemorrhage [Recovering/Resolving]

NARRATIVE: CASE EVENT DATE: 20190228
